FAERS Safety Report 11348469 (Version 1)
Quarter: 2015Q3

REPORT INFORMATION
  Report Type: Spontaneous
  Country: US (occurrence: US)
  Receive Date: 20150806
  Receipt Date: 20150806
  Transmission Date: 20151125
  Serious: Yes (Death, Other)
  Sender: FDA-Public Use
  Company Number: US-ASTELLAS-2015US027998

PATIENT
  Age: 59 Year
  Sex: Male

DRUGS (1)
  1. TARCEVA [Suspect]
     Active Substance: ERLOTINIB HYDROCHLORIDE
     Indication: PROSTATE CANCER
     Dosage: 100 MG, 1 IN 1 D
     Route: 048
     Dates: start: 20150508

REACTIONS (2)
  - Gastric disorder [Unknown]
  - Death [Fatal]

NARRATIVE: CASE EVENT DATE: 20150708
